FAERS Safety Report 8787601 (Version 2)
Quarter: 2015Q2

REPORT INFORMATION
  Report Type: Report from Study
  Country: US (occurrence: US)
  Receive Date: 20120914
  Receipt Date: 20150618
  Transmission Date: 20150821
  Serious: Yes (Death)
  Sender: FDA-Public Use
  Company Number: US-ROCHE-1127087

PATIENT
  Sex: Male

DRUGS (15)
  1. AVASTIN [Suspect]
     Active Substance: BEVACIZUMAB
     Indication: OESOPHAGEAL CARCINOMA
     Route: 042
  2. ADRIAMYCIN [Concomitant]
     Active Substance: DOXORUBICIN HYDROCHLORIDE
     Route: 065
  3. LEUCOVORIN [Concomitant]
     Active Substance: LEUCOVORIN
     Route: 065
  4. AVASTIN [Suspect]
     Active Substance: BEVACIZUMAB
     Route: 042
  5. BENADRYL [Concomitant]
     Active Substance: DIPHENHYDRAMINE HYDROCHLORIDE
     Route: 065
  6. TYLENOL [Concomitant]
     Active Substance: ACETAMINOPHEN
     Route: 065
  7. NEULASTA [Concomitant]
     Active Substance: PEGFILGRASTIM
     Route: 065
  8. AVASTIN [Suspect]
     Active Substance: BEVACIZUMAB
     Route: 042
  9. ZOMETA [Concomitant]
     Active Substance: ZOLEDRONIC ACID
     Route: 065
  10. ALOXI [Concomitant]
     Active Substance: PALONOSETRON HYDROCHLORIDE
     Route: 065
  11. 5-FU [Concomitant]
     Active Substance: FLUOROURACIL
     Route: 065
  12. TAXOL [Concomitant]
     Active Substance: PACLITAXEL
     Route: 065
  13. AVASTIN [Suspect]
     Active Substance: BEVACIZUMAB
     Route: 042
  14. DECADRON [Concomitant]
     Active Substance: DEXAMETHASONE
     Route: 065
  15. CARBOPLATIN. [Concomitant]
     Active Substance: CARBOPLATIN
     Route: 065

REACTIONS (2)
  - Death [Fatal]
  - Off label use [Unknown]
